FAERS Safety Report 16083504 (Version 2)
Quarter: 2019Q1

REPORT INFORMATION
  Report Type: Spontaneous
  Country: US (occurrence: US)
  Receive Date: 20190318
  Receipt Date: 20190325
  Transmission Date: 20190418
  Serious: No
  Sender: FDA-Public Use
  Company Number: US-AMGEN INC.-USASP2019039472

PATIENT
  Age: 47 Year
  Sex: Female
  Weight: 65.31 kg

DRUGS (1)
  1. AIMOVIG [Suspect]
     Active Substance: ERENUMAB-AOOE
     Indication: MIGRAINE
     Dosage: 140 MILLIGRAM UNK
     Route: 065
     Dates: start: 20190214

REACTIONS (1)
  - Nausea [Recovered/Resolved]

NARRATIVE: CASE EVENT DATE: 20190214
